FAERS Safety Report 11643314 (Version 2)
Quarter: 2015Q4

REPORT INFORMATION
  Report Type: Spontaneous
  Country: BR (occurrence: BR)
  Receive Date: 20151020
  Receipt Date: 20151027
  Transmission Date: 20160304
  Serious: Yes (Other)
  Sender: FDA-Public Use
  Company Number: BR-TORRENT-00003156

PATIENT
  Age: 62 Year
  Sex: Female
  Weight: 71 kg

DRUGS (4)
  1. LEVOID [Concomitant]
     Active Substance: LEVOTHYROXINE
     Indication: AUTOIMMUNE THYROIDITIS
     Dosage: ONCE DAILY/ ORAL
     Route: 048
  2. TORL?S-H [Suspect]
     Active Substance: HYDROCHLOROTHIAZIDE\LOSARTAN POTASSIUM
     Indication: HYPERTENSION
     Dosage: LOSARTAN 50 MG/ HYDROCHLOROTHIAZIDE 12.5 MG TWICE DAILY/ ORAL
     Route: 048
     Dates: start: 2010, end: 201510
  3. VITAMIN B12 [Concomitant]
     Active Substance: CYANOCOBALAMIN
     Indication: VITAMIN SUPPLEMENTATION
     Dosage: DOSE NUMBER IS UNKNOWN/ ONCE DAILY/ ORAL
     Route: 048
     Dates: start: 2008
  4. CALCIUM [Concomitant]
     Active Substance: CALCIUM
     Indication: MINERAL SUPPLEMENTATION
     Dosage: DOSE NUMBER IS UNKNOWN/ ONCE DAILY/ ORAL
     Route: 048
     Dates: start: 2008

REACTIONS (3)
  - Dengue fever [Recovered/Resolved]
  - Oedema [Recovered/Resolved]
  - Drug ineffective [Recovered/Resolved]

NARRATIVE: CASE EVENT DATE: 201502
